FAERS Safety Report 13793489 (Version 1)
Quarter: 2017Q3

REPORT INFORMATION
  Report Type: Report from Study
  Country: None (occurrence: BR)
  Receive Date: 20170726
  Receipt Date: 20170726
  Transmission Date: 20171127
  Serious: Yes (Hospitalization)
  Sender: FDA-Public Use
  Company Number: BR-ABBVIE-17K-020-2050758-00

PATIENT
  Age: 15 Year
  Sex: Female
  Weight: 36.7 kg

DRUGS (4)
  1. HUMIRA [Suspect]
     Active Substance: ADALIMUMAB
     Route: 058
  2. HUMIRA [Suspect]
     Active Substance: ADALIMUMAB
     Indication: CROHN^S DISEASE
     Dosage: WEEK 0
     Route: 058
     Dates: start: 20151201, end: 20151201
  3. HUMIRA [Suspect]
     Active Substance: ADALIMUMAB
     Route: 058
  4. HUMIRA [Suspect]
     Active Substance: ADALIMUMAB
     Dosage: WEEK 2
     Route: 058
     Dates: start: 20151215, end: 20151215

REACTIONS (7)
  - Crohn^s disease [Recovered/Resolved]
  - Malnutrition [Recovering/Resolving]
  - Crohn^s disease [Recovered/Resolved]
  - C-reactive protein abnormal [Recovered/Resolved]
  - Haematochezia [Recovered/Resolved]
  - Psoriasis [Recovered/Resolved]
  - Haematochezia [Recovered/Resolved]

NARRATIVE: CASE EVENT DATE: 2017
